FAERS Safety Report 10378543 (Version 1)
Quarter: 2014Q3

REPORT INFORMATION
  Report Type: Spontaneous
  Country: US (occurrence: None)
  Receive Date: 20140811
  Receipt Date: 20140811
  Transmission Date: 20150326
  Serious: Yes (Other)
  Sender: FDA-Public Use
  Company Number: None

PATIENT
  Age: 43 Year
  Sex: Female
  Weight: 47.63 kg

DRUGS (2)
  1. PROLIA [Suspect]
     Active Substance: DENOSUMAB
     Indication: RIB FRACTURE
     Dosage: EVERY 6 MONTHS SUBCUTANEOUS
     Route: 058
  2. PROLIA [Suspect]
     Active Substance: DENOSUMAB
     Indication: OSTEOPENIA
     Dosage: EVERY 6 MONTHS SUBCUTANEOUS
     Route: 058

REACTIONS (6)
  - Bone loss [None]
  - Back pain [None]
  - Sinus disorder [None]
  - Tooth loss [None]
  - Heart rate increased [None]
  - Blood calcium decreased [None]
